FAERS Safety Report 21583869 (Version 1)
Quarter: 2022Q4

REPORT INFORMATION
  Report Type: Report from Study
  Country: GR (occurrence: GR)
  Receive Date: 20221111
  Receipt Date: 20221111
  Transmission Date: 20230113
  Serious: Yes (Death, Other)
  Sender: FDA-Public Use
  Company Number: GR-ABBVIE-4169601

PATIENT
  Age: 55 Year
  Sex: Male
  Weight: 78 kg

DRUGS (25)
  1. VENETOCLAX [Suspect]
     Active Substance: VENETOCLAX
     Indication: Chronic lymphocytic leukaemia
     Route: 048
     Dates: start: 20210405, end: 20210624
  2. losartan (CO-RABOLAN) [Concomitant]
     Indication: Hypertension
     Dosage: 112.5MG
     Route: 048
  3. CO RABOLAN [Concomitant]
     Indication: Product used for unknown indication
     Dosage: 112.5MG
     Route: 048
  4. amiodarone (Angoron) [Concomitant]
     Indication: Arrhythmia prophylaxis
     Route: 065
  5. ZOVIRAX [Concomitant]
     Active Substance: ACYCLOVIR
     Indication: Product used for unknown indication
     Route: 048
  6. levofloxacin (Tavanic) [Concomitant]
     Indication: Cellulitis
     Route: 048
     Dates: start: 20210701, end: 20210708
  7. Finastir (Finasteride) [Concomitant]
     Indication: Product used for unknown indication
     Route: 048
  8. allopurinol (Zylapour) [Concomitant]
     Indication: Prophylaxis
     Route: 048
  9. BEMIPARIN SODIUM [Concomitant]
     Active Substance: BEMIPARIN SODIUM
     Indication: Product used for unknown indication
     Route: 030
  10. LASIX [Concomitant]
     Active Substance: FUROSEMIDE
     Indication: Diuretic therapy
     Route: 048
  11. LASIX [Concomitant]
     Active Substance: FUROSEMIDE
     Indication: Product used for unknown indication
     Route: 048
  12. lamivudine (Zeffix) [Concomitant]
     Indication: Chronic hepatitis B
     Route: 048
     Dates: start: 20200625
  13. Tavanic (Levofloxacin) [Concomitant]
     Indication: Product used for unknown indication
     Route: 048
     Dates: start: 20210701, end: 20210708
  14. Omeprazol (Losec) [Concomitant]
     Indication: Gastrointestinal disorder prophylaxis
     Route: 048
     Dates: start: 20210504
  15. AMIODARONE HYDROCHLORIDE [Concomitant]
     Active Substance: AMIODARONE HYDROCHLORIDE
     Indication: Product used for unknown indication
     Route: 065
  16. aciclovir (Zovirax) [Concomitant]
     Indication: Antiviral prophylaxis
     Route: 048
  17. Silodyx (Silodosin) [Concomitant]
     Indication: Product used for unknown indication
     Route: 048
  18. bemiparin (Ivor) [Concomitant]
     Indication: Oesophagectomy
     Route: 030
  19. Zylapour (Allopurinol) [Concomitant]
     Indication: Product used for unknown indication
     Route: 048
  20. Sultamicillin Tosylate (Begalin) [Concomitant]
     Indication: Cellulitis
     Dosage: TIME INTERVAL: 0.33333333 DAYS
     Route: 048
     Dates: start: 20210701, end: 20210708
  21. LOSEC [Concomitant]
     Active Substance: OMEPRAZOLE
     Indication: Product used for unknown indication
     Route: 048
     Dates: start: 20210504
  22. finasteride (Finastir) [Concomitant]
     Indication: Benign prostatic hyperplasia
     Route: 048
  23. Begalin (Sultamicillin tosilate) [Concomitant]
     Indication: Product used for unknown indication
     Dosage: TIME INTERVAL: 0.33333333 DAYS
     Route: 048
     Dates: start: 20210701, end: 20210708
  24. silodosin (silodyx) [Concomitant]
     Indication: Benign prostatic hyperplasia
     Route: 048
  25. Zeffix (Lamivudine) [Concomitant]
     Indication: Product used for unknown indication
     Route: 048
     Dates: start: 20200625

REACTIONS (6)
  - Death [Fatal]
  - Cellulitis [Recovered/Resolved]
  - Thrombocytopenia [Not Recovered/Not Resolved]
  - COVID-19 [Unknown]
  - Cardiac failure [Unknown]
  - Acute kidney injury [Unknown]

NARRATIVE: CASE EVENT DATE: 20210624
